FAERS Safety Report 9524561 (Version 1)
Quarter: 2013Q1

REPORT INFORMATION
  Report Type: Spontaneous
  Country: US (occurrence: None)
  Receive Date: 20130305
  Receipt Date: 20130305
  Transmission Date: 20140127
  Serious: Yes (Other)
  Sender: FDA-Public Use
  Company Number: 163-21880-12021106

PATIENT
  Age: 57 Year
  Sex: Male

DRUGS (4)
  1. REVLIMID [Suspect]
     Indication: MYELOFIBROSIS
     Dosage: 5 MG, X 28 CAPS, PO
     Route: 048
     Dates: start: 20121202
  2. LEVOFLOXACIN (LEVOFLOXACIN) (UNKNOWN) [Concomitant]
  3. CEPHALEXIN (CEFALEXIN) (UNKNOWN) [Concomitant]
  4. OMEPRAZOLE (OMEPRAZOLE) (UNKNOWN) [Concomitant]

REACTIONS (4)
  - Haemoglobin decreased [None]
  - Pyrexia [None]
  - Bone pain [None]
  - Thrombocytopenia [None]
